FAERS Safety Report 6245264-7 (Version None)
Quarter: 2009Q2

REPORT INFORMATION
  Report Type: 
  Country: None (occurrence: None)
  Receive Date: 20090623
  Receipt Date: 20090623
  Transmission Date: 20091009
  Serious: Yes (Other)
  Sender: FDA-Public Use
  Company Number: None

PATIENT
  Sex: Female
  Weight: 56.6996 kg

DRUGS (1)
  1. FLUTICASONE PROPIONATE [Suspect]
     Dosage: 2 SPRAYS EACH NOSTRIL DAILY NASAL
     Route: 045
     Dates: start: 20050101, end: 20090315

REACTIONS (4)
  - EPISTAXIS [None]
  - HYPOSMIA [None]
  - NASAL DISCOMFORT [None]
  - WEIGHT INCREASED [None]
